FAERS Safety Report 11710127 (Version 2)
Quarter: 2015Q4

REPORT INFORMATION
  Report Type: Spontaneous
  Country: US (occurrence: US)
  Receive Date: 20151104
  Receipt Date: 20151110
  Transmission Date: 20160304
  Serious: No
  Sender: FDA-Public Use
  Company Number: US-ELI_LILLY_AND_COMPANY-US201108003431

PATIENT
  Age: 56 Year
  Sex: Female

DRUGS (1)
  1. FORTEO [Suspect]
     Active Substance: TERIPARATIDE
     Indication: OSTEOPOROSIS
     Dosage: 20 UG, QD

REACTIONS (7)
  - Anger [Unknown]
  - Drug dose omission [Unknown]
  - Feeling abnormal [Unknown]
  - Malaise [Unknown]
  - Intentional product misuse [Unknown]
  - Incorrect product storage [Unknown]
  - Bone pain [Unknown]

NARRATIVE: CASE EVENT DATE: 20110805
